FAERS Safety Report 8525101-8 (Version None)
Quarter: 2012Q3

REPORT INFORMATION
  Report Type: 
  Country: None (occurrence: None)
  Receive Date: 20120710
  Receipt Date: 20120626
  Transmission Date: 20120928
  Serious: Yes (Other)
  Sender: FDA-Public Use
  Company Number: MY-TORRENT-00000005

PATIENT

DRUGS (1)
  1. LEVETIRACETAM [Suspect]

REACTIONS (2)
  - EPILEPSY [None]
  - PRODUCT SUBSTITUTION ISSUE [None]
